FAERS Safety Report 5772467-8 (Version None)
Quarter: 2008Q2

REPORT INFORMATION
  Report Type: 
  Country: None (occurrence: None)
  Receive Date: 20080613
  Receipt Date: 20080530
  Transmission Date: 20081010
  Serious: Yes (Hospitalization)
  Sender: FDA-Public Use
  Company Number: JP-GENENTECH-262353

PATIENT
  Sex: Male

DRUGS (4)
  1. BEVACIZUMAB [Suspect]
     Indication: RECTAL CANCER
     Dosage: 5 MG/KG, UNK
     Route: 041
     Dates: start: 20071010, end: 20080401
  2. IRINOTECAN HCL [Suspect]
     Indication: RECTAL CANCER
     Dosage: 100 MG/M2, UNK
     Route: 041
  3. FLUOROURACIL [Suspect]
     Indication: RECTAL CANCER
     Dosage: UNK, UNK
     Route: 040
  4. LEUCOVORIN CALCIUM [Suspect]
     Indication: RECTAL CANCER
     Route: 041

REACTIONS (3)
  - ANOREXIA [None]
  - DUODENAL STENOSIS [None]
  - NEUTROPHIL COUNT DECREASED [None]
